FAERS Safety Report 13818551 (Version 3)
Quarter: 2017Q3

REPORT INFORMATION
  Report Type: Spontaneous
  Country: AR (occurrence: AR)
  Receive Date: 20170801
  Receipt Date: 20170915
  Transmission Date: 20171127
  Serious: Yes (Other)
  Sender: FDA-Public Use
  Company Number: PHHY2017AR111074

PATIENT
  Age: 33 Year

DRUGS (1)
  1. SIMULECT [Suspect]
     Active Substance: BASILIXIMAB
     Indication: RENAL TRANSPLANT
     Dosage: 200 MG, UNK
     Route: 042

REACTIONS (10)
  - Mechanical urticaria [Recovering/Resolving]
  - Transaminases increased [Unknown]
  - Eosinophilia [Unknown]
  - Chronic kidney disease [Unknown]
  - Tremor [Recovering/Resolving]
  - Rash [Recovering/Resolving]
  - Leukocytosis [Unknown]
  - Anaphylactic reaction [Recovering/Resolving]
  - Pyrexia [Recovering/Resolving]
  - Blood lactate dehydrogenase increased [Unknown]

NARRATIVE: CASE EVENT DATE: 20170722
